FAERS Safety Report 7480468-7 (Version None)
Quarter: 2011Q2

REPORT INFORMATION
  Report Type: 
  Country: None (occurrence: None)
  Receive Date: 20110512
  Receipt Date: 20110512
  Transmission Date: 20111010
  Serious: No
  Sender: FDA-Public Use
  Company Number: None

PATIENT
  Age: 64 Year
  Sex: Female
  Weight: 55.3388 kg

DRUGS (3)
  1. TEMAZEPAM [Suspect]
     Indication: INSOMNIA
     Dosage: 1-2 CAPS, HS PO
     Route: 048
     Dates: start: 20100815, end: 20110328
  2. BARACLUDE [Concomitant]
  3. ROPINEROL [Concomitant]

REACTIONS (4)
  - NERVE COMPRESSION [None]
  - TENDON RUPTURE [None]
  - NEUROPATHY PERIPHERAL [None]
  - LIGAMENT RUPTURE [None]
